FAERS Safety Report 7138266-X (Version None)
Quarter: 2010Q4

REPORT INFORMATION
  Report Type: 
  Country: None (occurrence: None)
  Receive Date: 20101206
  Receipt Date: 20100922
  Transmission Date: 20110411
  Serious: No
  Sender: FDA-Public Use
  Company Number: US-BAYER-201021669BCC

PATIENT
  Sex: Female
  Weight: 55.455 kg

DRUGS (6)
  1. ALEVE (CAPLET) [Suspect]
     Indication: PRODUCT USED FOR UNKNOWN INDICATION
     Route: 048
     Dates: start: 20100921, end: 20100901
  2. NORVASC [Concomitant]
     Indication: HYPERTENSION
  3. ONE A DAY [Concomitant]
  4. ASPIRIN [Concomitant]
     Dosage: DAILY DOSE 81 MG
  5. AMBIEN [Concomitant]
     Indication: INSOMNIA
  6. PREMPRO [Concomitant]
     Indication: MENOPAUSE

REACTIONS (1)
  - RASH [None]
